FAERS Safety Report 12937844 (Version 4)
Quarter: 2019Q3

REPORT INFORMATION
  Report Type: Spontaneous
  Country: US (occurrence: US)
  Receive Date: 20161114
  Receipt Date: 20190819
  Transmission Date: 20191004
  Serious: Yes (Hospitalization, Other)
  Sender: FDA-Public Use
  Company Number: US-PFIZER INC-2016334989

PATIENT
  Age: 57 Year
  Sex: Female
  Weight: 81.63 kg

DRUGS (4)
  1. WELLBUTRIN [Suspect]
     Active Substance: BUPROPION HYDROCHLORIDE
     Dosage: ONE DOSE FORM (DF) TWICE DAILY (BID)
     Route: 048
  2. PREMPRO [Suspect]
     Active Substance: ESTROGENS, CONJUGATED\MEDROXYPROGESTERONE ACETATE
     Indication: HOT FLUSH
     Dosage: ONE TABLET (0.625 MG/2.5 MG) ONCE DAILY
     Route: 048
  3. PREMPRO [Suspect]
     Active Substance: ESTROGENS, CONJUGATED\MEDROXYPROGESTERONE ACETATE
     Indication: MENOPAUSAL SYMPTOMS
  4. PREMPRO [Suspect]
     Active Substance: ESTROGENS, CONJUGATED\MEDROXYPROGESTERONE ACETATE
     Indication: MENOPAUSE
     Dosage: ONE TABLET (0.625 MG/2.5 MG) ONCE DAILY
     Route: 048
     Dates: start: 2008, end: 201610

REACTIONS (4)
  - Fall [Unknown]
  - Spinal fracture [Recovered/Resolved]
  - Product prescribing error [Unknown]
  - Nerve injury [Unknown]

NARRATIVE: CASE EVENT DATE: 20141210
